FAERS Safety Report 7351335-4 (Version None)
Quarter: 2011Q1

REPORT INFORMATION
  Report Type: 
  Country: None (occurrence: None)
  Receive Date: 20110314
  Receipt Date: 20110204
  Transmission Date: 20110831
  Serious: Yes (Other)
  Sender: FDA-Public Use
  Company Number: JP-PFIZER INC-2011023906

PATIENT
  Age: 86 Year
  Sex: Male

DRUGS (11)
  1. SEIBULE [Suspect]
     Indication: DIABETES MELLITUS
     Dosage: 50 MG, 3X/DAY
     Route: 048
     Dates: start: 20100610, end: 20101012
  2. GLYBURIDE [Concomitant]
     Dosage: UNK
     Dates: start: 20060524, end: 20081119
  3. LAFUTIDINE [Concomitant]
     Dosage: UNK
     Dates: start: 20060524
  4. METFORMIN HCL [Suspect]
     Indication: DIABETES MELLITUS
     Dosage: 500 MG, 1X/DAY
     Route: 048
     Dates: start: 20100610, end: 20101012
  5. CASODEX [Concomitant]
     Dosage: UNK
     Dates: start: 20070309
  6. AMARYL [Concomitant]
     Dosage: UNK
     Dates: start: 20100615
  7. ALLOPURINOL [Concomitant]
     Dosage: UNK
     Dates: start: 20060524
  8. MARZULENE S [Concomitant]
     Dosage: UNK
     Dates: start: 20060524
  9. LEUPLIN [Concomitant]
     Dosage: UNK
     Dates: start: 20070309
  10. ALOSENN [Concomitant]
     Dosage: UNK
     Dates: start: 20100608
  11. CEFMETAZON [Concomitant]
     Dosage: UNK
     Dates: start: 20100609, end: 20100623

REACTIONS (1)
  - LIVER DISORDER [None]
